FAERS Safety Report 8147084-5 (Version None)
Quarter: 2012Q1

REPORT INFORMATION
  Report Type: 
  Country: None (occurrence: None)
  Receive Date: 20120218
  Receipt Date: 20120208
  Transmission Date: 20120608
  Serious: Yes (Hospitalization, Other)
  Sender: FDA-Public Use
  Company Number: US-ASTRAZENECA-2011SE64379

PATIENT
  Age: 71 Year
  Sex: Female
  Weight: 91.6 kg

DRUGS (29)
  1. SODIUM MEDROL [Concomitant]
  2. CELEXA [Concomitant]
     Route: 048
  3. DOXYCYCLINE HYCLATE [Concomitant]
     Route: 048
  4. MAGNESIUM [Concomitant]
     Route: 048
  5. NEXIUM [Suspect]
     Indication: GASTROOESOPHAGEAL REFLUX DISEASE
     Route: 048
     Dates: start: 20090604, end: 20111203
  6. NEXIUM [Suspect]
     Route: 048
  7. ONCE A DAY MAX [Concomitant]
     Route: 048
  8. ZYRTEC [Concomitant]
     Route: 048
  9. MEDROL [Concomitant]
     Dosage: 4 MG ONCE SIX DAYS
     Route: 048
  10. VERAPAMIL [Concomitant]
     Route: 048
  11. ZOCOR [Concomitant]
     Route: 048
  12. XOPENEX [Concomitant]
     Route: 055
  13. NOVOLOG [Concomitant]
     Dosage: BEFORE EATING
  14. BROVANA [Concomitant]
     Route: 055
  15. XANAX [Concomitant]
     Indication: ANXIETY
     Dosage: 0.5 MG EVERY 12 HOURS AS NEEDED
     Route: 048
  16. VITAMIN B-12 [Concomitant]
     Route: 048
  17. VITAMIN D [Concomitant]
     Route: 048
  18. LASIX [Concomitant]
     Route: 048
  19. CALCIUM-VITAMIN D [Concomitant]
     Dosage: CALCIUM 600 + D TWICE DAILY
     Route: 048
  20. ACTONEL [Concomitant]
     Route: 048
  21. XOPENEX [Concomitant]
     Route: 055
  22. ALVESCO [Concomitant]
     Route: 055
  23. ALVESCO HFA [Concomitant]
     Route: 055
  24. SINGULAIR [Concomitant]
     Route: 048
  25. CARDURA [Concomitant]
     Route: 048
  26. MUCOMYST [Concomitant]
  27. CHOLESTYRAMINE [Concomitant]
     Route: 048
  28. PROPYLENE GLYCOL [Concomitant]
     Dosage: 4 DROPS BOTH EYES DAILY
  29. KLOR-CON [Concomitant]
     Route: 048

REACTIONS (8)
  - EMPHYSEMA [None]
  - LUNG NEOPLASM [None]
  - BONE DENSITY DECREASED [None]
  - RESPIRATORY DISORDER [None]
  - ASTHMA [None]
  - OSTEOPENIA [None]
  - CHRONIC OBSTRUCTIVE PULMONARY DISEASE [None]
  - HAEMOPHILUS INFECTION [None]
